FAERS Safety Report 20377548 (Version 1)
Quarter: 2022Q1

REPORT INFORMATION
  Report Type: Spontaneous
  Country: US (occurrence: US)
  Receive Date: 20220126
  Receipt Date: 20220126
  Transmission Date: 20220424
  Serious: No
  Sender: FDA-Public Use
  Company Number: US-ALLERGAN-2130002US

PATIENT

DRUGS (1)
  1. UBRELVY [Suspect]
     Active Substance: UBROGEPANT
     Indication: Migraine

REACTIONS (3)
  - Dizziness [Unknown]
  - Paraesthesia [Unknown]
  - Nausea [Unknown]
